FAERS Safety Report 5061178-2 (Version None)
Quarter: 2006Q3

REPORT INFORMATION
  Report Type: 
  Country: None (occurrence: None)
  Receive Date: 20060719
  Receipt Date: 20060719
  Transmission Date: 20061208
  Serious: Yes (Hospitalization)
  Sender: FDA-Public Use
  Company Number: None

PATIENT
  Age: 57 Year
  Sex: Male
  Weight: 128.368 kg

DRUGS (1)
  1. NAPROXEN [Suspect]
     Dosage: OTC

REACTIONS (3)
  - ANAEMIA [None]
  - DYSPNOEA EXERTIONAL [None]
  - FATIGUE [None]
